FAERS Safety Report 5304017-4 (Version None)
Quarter: 2007Q1

REPORT INFORMATION
  Report Type: 
  Country: None (occurrence: None)
  Receive Date: 20070201
  Receipt Date: 20061116
  Transmission Date: 20070707
  Serious: No
  Sender: FDA-Public Use
  Company Number: 2006PV025419

PATIENT
  Age: 58 Year
  Sex: Male
  Weight: 84.8226 kg

DRUGS (2)
  1. BYETTA [Suspect]
     Indication: DIABETES MELLITUS NON-INSULIN-DEPENDENT
     Dosage: 5 MCG;BID;SC
     Route: 058
     Dates: start: 20061018
  2. ACTOPLUS MET [Concomitant]

REACTIONS (6)
  - DISORIENTATION [None]
  - DIZZINESS [None]
  - HEADACHE [None]
  - MOTION SICKNESS [None]
  - NAUSEA [None]
  - WEIGHT DECREASED [None]
